FAERS Safety Report 7047829-1 (Version None)
Quarter: 2010Q4

REPORT INFORMATION
  Report Type: 
  Country: None (occurrence: None)
  Receive Date: 20101015
  Receipt Date: 20101012
  Transmission Date: 20110411
  Serious: Yes (Other)
  Sender: FDA-Public Use
  Company Number: US-PFIZER INC-2010098270

PATIENT
  Sex: Female
  Weight: 70.748 kg

DRUGS (5)
  1. ARTHROTEC [Suspect]
     Indication: OSTEOARTHRITIS
     Dosage: 75 MG, 2X/DAY
     Route: 048
     Dates: start: 20100512, end: 20100501
  2. HYDROCHLOROTHIAZIDE [Concomitant]
  3. TYLENOL W/ CODEINE NO. 3 [Concomitant]
  4. PREDNISONE [Concomitant]
     Dosage: UNK
  5. ATARAX [Concomitant]
     Dosage: 25 MG, 2X/DAY
     Route: 048

REACTIONS (3)
  - HYPERSENSITIVITY [None]
  - RASH MACULO-PAPULAR [None]
  - SKIN DISCOLOURATION [None]
